FAERS Safety Report 19586063 (Version 1)
Quarter: 2021Q3

REPORT INFORMATION
  Report Type: Report from Study
  Country: None (occurrence: US)
  Receive Date: 20210721
  Receipt Date: 20210721
  Transmission Date: 20211014
  Serious: Yes (Hospitalization, Other)
  Sender: FDA-Public Use
  Company Number: US-ABBVIE-21K-163-3984415-00

PATIENT
  Age: 18 Year
  Sex: Female
  Weight: 81.27 kg

DRUGS (1)
  1. HUMIRA [Suspect]
     Active Substance: ADALIMUMAB
     Indication: COLITIS ULCERATIVE
     Dosage: CITRATE FREE
     Route: 058
     Dates: start: 2019

REACTIONS (9)
  - Post procedural bile leak [Recovering/Resolving]
  - Biliary catheter insertion [Unknown]
  - Chest pain [Recovering/Resolving]
  - Arthralgia [Recovering/Resolving]
  - Cholecystectomy [Unknown]
  - Back pain [Recovering/Resolving]
  - Post procedural infection [Unknown]
  - Streptococcal infection [Recovering/Resolving]
  - Chills [Unknown]

NARRATIVE: CASE EVENT DATE: 2021
